FAERS Safety Report 17274433 (Version 1)
Quarter: 2020Q1

REPORT INFORMATION
  Report Type: Spontaneous
  Country: US (occurrence: US)
  Receive Date: 20200115
  Receipt Date: 20200115
  Transmission Date: 20200409
  Serious: Yes (Other)
  Sender: FDA-Public Use
  Company Number: US-009507513-2001USA003606

PATIENT
  Sex: Female

DRUGS (1)
  1. BRIDION [Suspect]
     Active Substance: SUGAMMADEX
     Indication: NEUROMUSCULAR BLOCKADE REVERSAL

REACTIONS (4)
  - Inhibitory drug interaction [Unknown]
  - Pregnancy on oral contraceptive [Unknown]
  - Maternal exposure before pregnancy [Unknown]
  - Unintended pregnancy [Unknown]
